FAERS Safety Report 7837670-1 (Version None)
Quarter: 2011Q4

REPORT INFORMATION
  Report Type: 
  Country: None (occurrence: None)
  Receive Date: 20111024
  Receipt Date: 20111010
  Transmission Date: 20120403
  Serious: Yes (Other)
  Sender: FDA-Public Use
  Company Number: PHHY2011JP90573

PATIENT
  Age: 83 Year
  Sex: Female
  Weight: 52 kg

DRUGS (1)
  1. IMATINIB MESYLATE [Suspect]
     Indication: GASTROINTESTINAL STROMAL TUMOUR
     Route: 065

REACTIONS (3)
  - TUMOUR NECROSIS [None]
  - OEDEMA PERIPHERAL [None]
  - TUMOUR HAEMORRHAGE [None]
